FAERS Safety Report 7963826-3 (Version None)
Quarter: 2011Q4

REPORT INFORMATION
  Report Type: 
  Country: None (occurrence: None)
  Receive Date: 20111208
  Receipt Date: 20111129
  Transmission Date: 20120403
  Serious: Yes (Death, Other)
  Sender: FDA-Public Use
  Company Number: US-BAYER-201012139NA

PATIENT
  Age: 46 Year
  Sex: Male
  Weight: 107.4 kg

DRUGS (18)
  1. PERCOCET [Concomitant]
     Indication: PAIN
     Dosage: 5/325 MG 1-2 TABLETS EVERY 4 HOURS
  2. HEPARIN [Concomitant]
     Dosage: 44000 U, UNK
     Dates: start: 20050322
  3. ETOMIDATE [Concomitant]
     Dosage: 12 MG, UNK
     Dates: start: 20050322
  4. LOPRESSOR [Concomitant]
     Indication: BLOOD PRESSURE MANAGEMENT
     Dosage: 50 MG, BID
     Route: 048
  5. LOPRESSOR [Concomitant]
     Indication: HEART RATE DECREASED
  6. INSULIN [Concomitant]
     Dosage: UNK
     Dates: start: 20050322
  7. SUXAMETHONIUM [Concomitant]
     Dosage: 140 MG, UNK
     Dates: start: 20050322
  8. TRASYLOL [Suspect]
     Indication: AORTIC ANEURYSM REPAIR
     Dosage: 200 CC,  UNK
     Route: 042
     Dates: start: 20050322, end: 20050322
  9. ACETYLSALICYLIC ACID SRT [Concomitant]
     Indication: PLATELET DISORDER
     Dosage: 81 MG, QD
     Route: 048
  10. TRASYLOL [Suspect]
     Dosage: 50 CC/HR
     Route: 042
     Dates: start: 20050322, end: 20050322
  11. FENTANYL-100 [Concomitant]
     Dosage: UNK
     Dates: start: 20050322
  12. DEMEROL [Concomitant]
     Indication: PAIN
     Dosage: 25-50 MG
     Route: 042
     Dates: start: 20050509
  13. VECURONIUM BROMIDE [Concomitant]
     Dosage: UNK
     Dates: start: 20050322
  14. CEFUROXIME [Concomitant]
     Dosage: 1.5 G, UNK
     Dates: start: 20050322
  15. NITROGLYCERIN [Concomitant]
     Dosage: UNK
     Dates: start: 20050322
  16. ISOFLURANE [Concomitant]
     Dosage: UNK
     Dates: start: 20050322
  17. VERSED [Concomitant]
     Dosage: 3 MG, UNK
     Dates: start: 20050322
  18. INSULIN [Concomitant]
     Dosage: 30 U, TID
     Route: 058

REACTIONS (13)
  - DEATH [None]
  - EMOTIONAL DISTRESS [None]
  - PAIN [None]
  - MULTI-ORGAN FAILURE [None]
  - ANXIETY [None]
  - RENAL FAILURE [None]
  - RENAL INJURY [None]
  - CARDIAC FAILURE [None]
  - UNEVALUABLE EVENT [None]
  - FEAR [None]
  - RENAL IMPAIRMENT [None]
  - STRESS [None]
  - INJURY [None]
